FAERS Safety Report 26191998 (Version 2)
Quarter: 2025Q4

REPORT INFORMATION
  Report Type: Report from Study
  Country: JP (occurrence: None)
  Receive Date: 20251223
  Receipt Date: 20251224
  Transmission Date: 20260118
  Serious: Yes (Congenital Anomaly)
  Sender: UCB
  Company Number: JP-UCBSA-2025080825

PATIENT

DRUGS (1)
  1. LEVETIRACETAM [Suspect]
     Active Substance: LEVETIRACETAM
     Indication: Product used for unknown indication
     Dosage: 2750 MILLIGRAM, DAILY

REACTIONS (2)
  - Asphyxiating thoracic dystrophy [Unknown]
  - Maternal exposure during pregnancy [Unknown]
